FAERS Safety Report 15204010 (Version 1)
Quarter: 2018Q4

REPORT INFORMATION
  Report Type: Report from Study
  Country: ES (occurrence: ES)
  Receive Date: 20180726
  Receipt Date: 20180726
  Transmission Date: 20190204
  Serious: Yes (Hospitalization)
  Sender: FDA-Public Use
  Company Number: ES-TEVA-2018-ES-931056

PATIENT
  Age: 27 Year
  Sex: Female

DRUGS (3)
  1. IBUPROFENO (1769A) [Suspect]
     Active Substance: IBUPROFEN
     Indication: BACK PAIN
     Route: 048
     Dates: start: 20160812, end: 20160813
  2. DEXKETOPROFENO (7312A) [Interacting]
     Active Substance: DEXKETOPROFEN
     Indication: BACK PAIN
     Route: 048
     Dates: start: 20160812, end: 20160813
  3. METAMIZOL (111A) [Interacting]
     Active Substance: METAMIZOL SODIUM
     Indication: BACK PAIN
     Route: 048
     Dates: start: 20160812, end: 20160813

REACTIONS (2)
  - Drug interaction [Unknown]
  - Acute kidney injury [Recovering/Resolving]

NARRATIVE: CASE EVENT DATE: 20160814
